FAERS Safety Report 23840717 (Version 2)
Quarter: 2024Q4

REPORT INFORMATION
  Report Type: Spontaneous
  Country: CA (occurrence: CA)
  Receive Date: 20240510
  Receipt Date: 20241023
  Transmission Date: 20250114
  Serious: Yes (Death)
  Sender: ACCORD
  Company Number: None

PATIENT
  Age: 67 Year
  Sex: Female

DRUGS (11)
  1. CAPECITABINE [Suspect]
     Active Substance: CAPECITABINE
     Indication: Adenocarcinoma of colon
     Dosage: 2 EVERY 1 DAYS
     Route: 048
  2. ALENDRONATE SODIUM [Concomitant]
     Active Substance: ALENDRONATE SODIUM
  3. DEXAMETHASONE [Concomitant]
     Active Substance: DEXAMETHASONE
     Route: 065
  4. FOLIC ACID [Concomitant]
     Active Substance: FOLIC ACID
  5. HYDROXYCHLOROQUINE [Concomitant]
     Active Substance: HYDROXYCHLOROQUINE
  6. METHOTREXATE [Concomitant]
     Active Substance: METHOTREXATE
     Route: 048
  7. METOCLOPRAMIDE [Concomitant]
     Active Substance: METOCLOPRAMIDE
  8. MOMETASONE FUROATE [Concomitant]
     Active Substance: MOMETASONE FUROATE
  9. RAMIPRIL [Concomitant]
     Active Substance: RAMIPRIL
  10. RANITIDINE [Concomitant]
     Active Substance: RANITIDINE
  11. ROSUVASTATIN [Concomitant]
     Active Substance: ROSUVASTATIN
     Route: 058

REACTIONS (5)
  - Cardiac arrest [Fatal]
  - Diarrhoea [Fatal]
  - Endotracheal intubation [Fatal]
  - Nausea [Fatal]
  - Vomiting [Fatal]
